FAERS Safety Report 11752549 (Version 3)
Quarter: 2016Q4

REPORT INFORMATION
  Report Type: Spontaneous
  Country: DK (occurrence: DK)
  Receive Date: 20151119
  Receipt Date: 20161220
  Transmission Date: 20170206
  Serious: Yes (Disabling)
  Sender: FDA-Public Use
  Company Number: DK-ROCHE-1659840

PATIENT
  Age: 64 Year
  Sex: Female

DRUGS (6)
  1. LEVACT (DENMARK) [Suspect]
     Active Substance: BENDAMUSTINE HYDROCHLORIDE
     Indication: B-CELL LYMPHOMA
     Dosage: STRENGTH: 2.5 MG/ML.
     Route: 065
     Dates: start: 20140707, end: 20141001
  2. ONDANSETRON [Concomitant]
     Active Substance: ONDANSETRON
     Indication: NAUSEA
     Dosage: DOSING FREQUENCY: AS REQUIRED, MAX X?4.
     Route: 065
     Dates: start: 20140707, end: 20140710
  3. AMLODIPIN [Concomitant]
     Active Substance: AMLODIPINE BESYLATE
     Indication: HYPERTENSION
     Dosage: STYRKE: 10 MG
     Route: 065
     Dates: start: 2012
  4. MABTHERA [Suspect]
     Active Substance: RITUXIMAB
     Indication: B-CELL LYMPHOMA
     Route: 065
     Dates: start: 20140707
  5. MOTILIUM [Concomitant]
     Active Substance: DOMPERIDONE
     Indication: NAUSEA
     Dosage: DOSING FREQUENCY: AS REQUIRED, MAX X 4
     Route: 048
     Dates: start: 20140707, end: 20150204
  6. SIMVASTATIN. [Concomitant]
     Active Substance: SIMVASTATIN
     Indication: HYPERCHOLESTEROLAEMIA
     Dosage: STYRKE: 20 MG
     Route: 065
     Dates: start: 2012

REACTIONS (19)
  - Neuropathy peripheral [Not Recovered/Not Resolved]
  - Ear discomfort [Recovered/Resolved]
  - Diplopia [Not Recovered/Not Resolved]
  - Mydriasis [Recovered/Resolved]
  - Hypoaesthesia [Not Recovered/Not Resolved]
  - Anaemia [Recovering/Resolving]
  - Neuralgia [Not Recovered/Not Resolved]
  - Chills [Recovered/Resolved]
  - Gait disturbance [Not Recovered/Not Resolved]
  - Motor dysfunction [Not Recovered/Not Resolved]
  - Paraesthesia [Not Recovered/Not Resolved]
  - Tremor [Recovered/Resolved]
  - Fatigue [Not Recovered/Not Resolved]
  - Vision blurred [Not Recovered/Not Resolved]
  - Cerebral disorder [Not Recovered/Not Resolved]
  - Pain in extremity [Not Recovered/Not Resolved]
  - Plasmapheresis [Recovered/Resolved]
  - Alopecia [Recovering/Resolving]
  - Wheelchair user [Unknown]

NARRATIVE: CASE EVENT DATE: 201408
